FAERS Safety Report 25364101 (Version 3)
Quarter: 2025Q3

REPORT INFORMATION
  Report Type: Spontaneous
  Country: BR (occurrence: BR)
  Receive Date: 20250527
  Receipt Date: 20250725
  Transmission Date: 20251021
  Serious: Yes (Other)
  Sender: TEVA
  Company Number: BR-TEVA-VS-3333379

PATIENT
  Age: 73 Year
  Sex: Female

DRUGS (4)
  1. OXALIPLATIN [Suspect]
     Active Substance: OXALIPLATIN
     Indication: Ductal adenocarcinoma of pancreas
     Route: 065
     Dates: start: 20250409, end: 20250507
  2. FLUOROURACIL [Suspect]
     Active Substance: FLUOROURACIL
     Indication: Ductal adenocarcinoma of pancreas
     Route: 065
     Dates: start: 20250409
  3. LEUCOVORIN CALCIUM [Suspect]
     Active Substance: LEUCOVORIN CALCIUM
     Indication: Ductal adenocarcinoma of pancreas
     Route: 065
     Dates: start: 20250409
  4. IRINOTECAN [Suspect]
     Active Substance: IRINOTECAN
     Indication: Ductal adenocarcinoma of pancreas
     Route: 065
     Dates: start: 20250409

REACTIONS (2)
  - Eyelid myoclonus [Recovered/Resolved]
  - Dysphonia [Recovered/Resolved]

NARRATIVE: CASE EVENT DATE: 20250507
